FAERS Safety Report 14600715 (Version 2)
Quarter: 2018Q2

REPORT INFORMATION
  Report Type: Spontaneous
  Country: US (occurrence: US)
  Receive Date: 20180305
  Receipt Date: 20180411
  Transmission Date: 20180711
  Serious: No
  Sender: FDA-Public Use
  Company Number: US-SUNOVION-2018SUN000641

PATIENT
  Age: 67 Year
  Sex: Female
  Weight: 70.3 kg

DRUGS (4)
  1. ELIQUIS [Concomitant]
     Active Substance: APIXABAN
     Indication: CEREBROVASCULAR ACCIDENT
     Dosage: 5 MG, BID
  2. MULTIVITAMINS [Concomitant]
     Active Substance: VITAMINS
     Dosage: UNK
  3. APTIOM [Suspect]
     Active Substance: ESLICARBAZEPINE ACETATE
     Indication: SEIZURE
     Dosage: 400 MG, UNK
     Route: 048
     Dates: start: 201802
  4. NEURONTIN [Concomitant]
     Active Substance: GABAPENTIN
     Dosage: TWO 100 MG CAPSULES ORALLY EVERYDAY AT BEDTIME
     Route: 048

REACTIONS (1)
  - Hunger [Not Recovered/Not Resolved]

NARRATIVE: CASE EVENT DATE: 201802
